FAERS Safety Report 12341426 (Version 3)
Quarter: 2016Q3

REPORT INFORMATION
  Report Type: Spontaneous
  Country: PE (occurrence: PE)
  Receive Date: 20160506
  Receipt Date: 20160725
  Transmission Date: 20161109
  Serious: Yes (Other)
  Sender: FDA-Public Use
  Company Number: PE-PFIZER INC-2016239883

PATIENT
  Age: 75 Year
  Sex: Male

DRUGS (2)
  1. SYSTANE ULTRA [Concomitant]
     Active Substance: POLYETHYLENE GLYCOL 400\PROPYLENE GLYCOL
     Indication: INTRAOCULAR PRESSURE INCREASED
     Dosage: UNK, EN FEELS DISCOMFORT OR EVER 3 OR 4 HOURS DURING THE DAY
  2. XALATAN [Suspect]
     Active Substance: LATANOPROST
     Indication: GLAUCOMA
     Dosage: 1 DROP ON EACH EYE, DAILY
     Route: 047

REACTIONS (1)
  - Hypoacusis [Not Recovered/Not Resolved]
